FAERS Safety Report 9743469 (Version 1)
Quarter: 2013Q4

REPORT INFORMATION
  Report Type: Spontaneous
  Country: US (occurrence: US)
  Receive Date: 20131210
  Receipt Date: 20131210
  Transmission Date: 20140711
  Serious: No
  Sender: FDA-Public Use
  Company Number: US-TEVA-382741USA

PATIENT
  Age: 45 Year
  Sex: Female
  Weight: 86.71 kg

DRUGS (2)
  1. PARAGARD 380A [Suspect]
     Indication: CONTRACEPTION
     Route: 015
     Dates: start: 200706, end: 20130109
  2. MULTIVITAMIN [Concomitant]

REACTIONS (1)
  - Medical device complication [Recovered/Resolved]
